FAERS Safety Report 5450991-5 (Version None)
Quarter: 2007Q3

REPORT INFORMATION
  Report Type: 
  Country: None (occurrence: None)
  Receive Date: 20070913
  Receipt Date: 20070905
  Transmission Date: 20080115
  Serious: No
  Sender: FDA-Public Use
  Company Number: JP-JNJFOC-20070900196

PATIENT
  Age: 62 Year
  Sex: Female

DRUGS (1)
  1. DUROTEP [Suspect]
     Indication: DRUG USE FOR UNKNOWN INDICATION
     Route: 062

REACTIONS (4)
  - BLOOD PRESSURE INCREASED [None]
  - DIZZINESS [None]
  - NAUSEA [None]
  - PYREXIA [None]
